FAERS Safety Report 19139941 (Version 2)
Quarter: 2021Q2

REPORT INFORMATION
  Report Type: Spontaneous
  Country: US (occurrence: US)
  Receive Date: 20210415
  Receipt Date: 20210607
  Transmission Date: 20210717
  Serious: Yes (Hospitalization)
  Sender: FDA-Public Use
  Company Number: US-PFIZER INC-2021191321

PATIENT
  Age: 87 Year
  Sex: Female
  Weight: 63.49 kg

DRUGS (6)
  1. BYSTOLIC [Concomitant]
     Active Substance: NEBIVOLOL HYDROCHLORIDE
     Dosage: 10 MG
  2. ELIQUIS [Concomitant]
     Active Substance: APIXABAN
     Dosage: 2.5 UNK, (2.1/2 AM,PM)
  3. DOFETILIDE. [Suspect]
     Active Substance: DOFETILIDE
     Indication: ATRIAL FIBRILLATION
     Dosage: 375 UG, 3X/DAY (125 MCG 3 TIMES A DAY 3 PILLS EACH TIME)
     Dates: start: 202103
  4. DILTIAZEM. [Concomitant]
     Active Substance: DILTIAZEM
     Dosage: UNK
     Dates: start: 202003
  5. DIGOXIN. [Concomitant]
     Active Substance: DIGOXIN
     Dosage: 125 MG, CYCLIC (1 EVERY OTHER DAY)
  6. DOFETILIDE. [Suspect]
     Active Substance: DOFETILIDE
     Indication: ATRIAL FLUTTER

REACTIONS (1)
  - Drug ineffective [Not Recovered/Not Resolved]
